FAERS Safety Report 10598526 (Version 1)
Quarter: 2014Q4

REPORT INFORMATION
  Report Type: Report from Study
  Country: US (occurrence: US)
  Receive Date: 20141121
  Receipt Date: 20141121
  Transmission Date: 20150529
  Serious: Yes (Other)
  Sender: FDA-Public Use
  Company Number: US-GILEAD-2014-0123101

PATIENT
  Sex: Male

DRUGS (3)
  1. RIBASPHERE RIBAPAK [Concomitant]
     Active Substance: RIBAVIRIN
     Dosage: 1200 MG, UNK
     Route: 048
     Dates: start: 20140905
  2. SOFOSBUVIR [Suspect]
     Active Substance: SOFOSBUVIR
     Indication: HEPATITIS C
     Dosage: UNK
     Route: 048
     Dates: start: 20140905
  3. PEGASYS [Concomitant]
     Active Substance: PEGINTERFERON ALFA-2A
     Dosage: UNK INJECTION
     Route: 065
     Dates: start: 20140905

REACTIONS (11)
  - Confusional state [Unknown]
  - Asthenia [Unknown]
  - Influenza [Unknown]
  - Mouth ulceration [Unknown]
  - Depression [Unknown]
  - Lethargy [Unknown]
  - Back pain [Unknown]
  - Hepatic cirrhosis [Unknown]
  - Pain [Unknown]
  - Fatigue [Unknown]
  - Decreased appetite [Unknown]

NARRATIVE: CASE EVENT DATE: 20140905
